FAERS Safety Report 9210297 (Version 2)
Quarter: 2015Q2

REPORT INFORMATION
  Report Type: Spontaneous
  Country: BR (occurrence: BR)
  Receive Date: 20130404
  Receipt Date: 20150403
  Transmission Date: 20150821
  Serious: Yes (Other)
  Sender: FDA-Public Use
  Company Number: BR-ROCHE-1209027

PATIENT
  Sex: Female
  Weight: 45 kg

DRUGS (4)
  1. AEROLIN [Concomitant]
     Active Substance: ALBUTEROL
     Indication: ASTHMA
  2. XOLAIR [Suspect]
     Active Substance: OMALIZUMAB
     Indication: ASTHMA
     Route: 030
     Dates: start: 201209
  3. XOLAIR [Suspect]
     Active Substance: OMALIZUMAB
     Route: 065
     Dates: start: 201302
  4. FORASEQ (BRAZIL) [Concomitant]
     Active Substance: BUDESONIDE\FORMOTEROL FUMARATE
     Route: 065

REACTIONS (6)
  - Asthenia [Recovered/Resolved]
  - Maternal exposure during pregnancy [Unknown]
  - Ectopic pregnancy [Unknown]
  - Incorrect route of drug administration [Unknown]
  - Abortion spontaneous [Unknown]
  - Eating disorder [Recovered/Resolved]
